FAERS Safety Report 5711046-5 (Version None)
Quarter: 2008Q2

REPORT INFORMATION
  Report Type: 
  Country: None (occurrence: None)
  Receive Date: 20080421
  Receipt Date: 20080410
  Transmission Date: 20081010
  Serious: Yes (Other)
  Sender: FDA-Public Use
  Company Number: US-ROCHE-557838

PATIENT
  Age: 6 Year
  Sex: Male

DRUGS (10)
  1. TAMIFLU [Suspect]
     Indication: INFLUENZA
     Route: 065
  2. BENADRYL [Concomitant]
     Dosage: DOSAGE AS NEEDED.
  3. BENADRYL [Concomitant]
     Dosage: DOSAGE AS NEEDED.
  4. BENADRYL [Concomitant]
     Dosage: DOSAGE AS NEEDED.
  5. BENADRYL [Concomitant]
     Dosage: DOSAGE AS NEEDED.
  6. BENADRYL [Concomitant]
     Dosage: DOSAGE AS NEEDED.
  7. BENADRYL [Concomitant]
     Dosage: DOSAGE AS NEEDED.
  8. BENADRYL [Concomitant]
     Dosage: DOSAGE AS NEEDED.
  9. BENADRYL [Concomitant]
     Dosage: DOSAGE AS NEEDED.
  10. BENADRYL [Concomitant]
     Dosage: DOSAGE AS NEEDED.

REACTIONS (5)
  - CONFUSIONAL STATE [None]
  - DELIRIUM [None]
  - HALLUCINATION, AUDITORY [None]
  - MIDDLE INSOMNIA [None]
  - SCREAMING [None]
